FAERS Safety Report 9520994 (Version 1)
Quarter: 2013Q3

REPORT INFORMATION
  Report Type: Spontaneous
  Country: US (occurrence: US)
  Receive Date: 20130913
  Receipt Date: 20130913
  Transmission Date: 20140515
  Serious: No
  Sender: FDA-Public Use
  Company Number: US-BAYER-2013-110318

PATIENT
  Age: 63 Year
  Sex: Male
  Weight: 104.31 kg

DRUGS (1)
  1. ALEVE CAPLET [Suspect]
     Indication: ANALGESIC THERAPY
     Dosage: 2 UNK, QD
     Route: 048
     Dates: start: 201308, end: 20130902

REACTIONS (2)
  - Drug ineffective [None]
  - Extra dose administered [None]
